FAERS Safety Report 7097872-1 (Version None)
Quarter: 2010Q4

REPORT INFORMATION
  Report Type: 
  Country: None (occurrence: None)
  Receive Date: 20101112
  Receipt Date: 20101102
  Transmission Date: 20110411
  Serious: Yes (Disabling)
  Sender: FDA-Public Use
  Company Number: IE-BAYER-201044197GPV

PATIENT
  Sex: Female

DRUGS (12)
  1. MIRENA [Suspect]
     Indication: ENDOMETRIOSIS
     Route: 015
     Dates: start: 20100401
  2. SERETIDE [Concomitant]
     Indication: ASTHMA
     Dosage: UNIT DOSE: 500 ?G
  3. FLUTICASONE PROPIONATE [Concomitant]
     Indication: ASTHMA
     Dosage: UNIT DOSE: 500 ?G
  4. SALMETEROL XINAFOATE [Concomitant]
     Indication: ASTHMA
     Dosage: UNIT DOSE: 500 ?G
  5. UNSPECIFIED STEROID CREAMS [Concomitant]
     Indication: ECZEMA
     Route: 061
  6. VENTOLIN/ SALBUTAMOL SULPHATE [Concomitant]
     Indication: ASTHMA
  7. VALTREX [Concomitant]
     Dosage: UNIT DOSE: 500 MG
     Dates: start: 20100619
  8. VALTREX [Concomitant]
     Dosage: UNIT DOSE: 500 MG
     Dates: start: 20100513
  9. VALTREX [Concomitant]
     Dates: start: 20100629
  10. DECAPEPTYL SR [Concomitant]
     Dates: start: 20100629
  11. DIANETTE [Concomitant]
     Dates: start: 20100513
  12. DIANETTE [Concomitant]
     Dates: start: 20100622

REACTIONS (1)
  - CONSTIPATION [None]
